FAERS Safety Report 21283830 (Version 1)
Quarter: 2022Q3

REPORT INFORMATION
  Report Type: Report from Study
  Country: US (occurrence: US)
  Receive Date: 20220901
  Receipt Date: 20220901
  Transmission Date: 20221026
  Serious: Yes (Other)
  Sender: FDA-Public Use
  Company Number: US-ABBVIE-22K-163-4522019-00

PATIENT
  Sex: Female

DRUGS (1)
  1. HUMIRA [Suspect]
     Active Substance: ADALIMUMAB
     Indication: Product used for unknown indication
     Route: 058

REACTIONS (5)
  - Obstruction [Unknown]
  - Large intestinal stenosis [Unknown]
  - Crohn^s disease [Unknown]
  - Acute febrile neutrophilic dermatosis [Unknown]
  - Rheumatoid arthritis [Unknown]
